FAERS Safety Report 8793850 (Version 4)
Quarter: 2013Q2

REPORT INFORMATION
  Report Type: Spontaneous
  Country: US (occurrence: US)
  Receive Date: 20120918
  Receipt Date: 20130426
  Transmission Date: 20140414
  Serious: No
  Sender: FDA-Public Use
  Company Number: US-009507513-1209USA004474

PATIENT
  Sex: Female
  Weight: 92.63 kg

DRUGS (1)
  1. IMPLANON [Suspect]
     Indication: CONTRACEPTION
     Dosage: UNK
     Route: 058
     Dates: start: 20110728

REACTIONS (7)
  - Unintended pregnancy [Recovered/Resolved]
  - Local swelling [Unknown]
  - Weight decreased [Unknown]
  - Medical device complication [Unknown]
  - Medical device complication [Unknown]
  - Medical device complication [Unknown]
  - Device expulsion [Unknown]
